FAERS Safety Report 7184977-X (Version None)
Quarter: 2010Q4

REPORT INFORMATION
  Report Type: 
  Country: None (occurrence: None)
  Receive Date: 20101222
  Receipt Date: 20101216
  Transmission Date: 20110411
  Serious: Yes (Hospitalization, Other)
  Sender: FDA-Public Use
  Company Number: JP-MERCK-1012USA00985

PATIENT
  Age: 83 Year
  Sex: Female

DRUGS (4)
  1. FOSAMAX [Suspect]
     Indication: OSTEOPOROSIS
     Route: 048
     Dates: end: 20100515
  2. TOYOFAROL [Concomitant]
     Indication: OSTEOPOROSIS
     Route: 048
  3. ASPARA CA [Concomitant]
     Indication: OSTEOPOROSIS
     Route: 048
  4. RANITAC [Concomitant]
     Indication: GASTRITIS
     Route: 048
     Dates: end: 20100515

REACTIONS (2)
  - EXOSTOSIS [None]
  - FEMUR FRACTURE [None]
